FAERS Safety Report 6567418-2 (Version None)
Quarter: 2010Q1

REPORT INFORMATION
  Report Type: 
  Country: None (occurrence: None)
  Receive Date: 20100202
  Receipt Date: 20100122
  Transmission Date: 20100710
  Serious: Yes (Hospitalization, Other)
  Sender: FDA-Public Use
  Company Number: US-BAXTER-2009BH003272

PATIENT
  Age: 60 Year
  Sex: Male
  Weight: 103 kg

DRUGS (20)
  1. HEPARIN SODIUM INJECTION [Suspect]
     Indication: ARTERIAL BYPASS OPERATION
     Route: 042
     Dates: start: 20071017
  2. HEPARIN SODIUM INJECTION [Suspect]
     Indication: CATHETERISATION CARDIAC
     Route: 042
     Dates: start: 20071017
  3. HEPARIN SODIUM INJECTION [Suspect]
     Route: 065
     Dates: start: 20060401
  4. HEPARIN SODIUM INJECTION [Suspect]
     Route: 065
     Dates: start: 20060401
  5. HEPARIN SODIUM INJECTION [Suspect]
     Route: 042
     Dates: start: 20071029
  6. HEPARIN SODIUM INJECTION [Suspect]
     Route: 042
     Dates: start: 20071029
  7. WARFARIN SODIUM [Suspect]
     Indication: DRUG USE FOR UNKNOWN INDICATION
     Route: 065
     Dates: end: 20071024
  8. CLOPIDOGREL [Suspect]
     Indication: DRUG USE FOR UNKNOWN INDICATION
     Route: 065
     Dates: end: 20071024
  9. ENOXAPARIN SODIUM [Suspect]
     Indication: DRUG USE FOR UNKNOWN INDICATION
     Route: 065
     Dates: start: 20071024, end: 20071029
  10. PAXIL [Concomitant]
     Indication: DRUG USE FOR UNKNOWN INDICATION
     Route: 065
  11. ALTACE [Concomitant]
     Indication: DRUG USE FOR UNKNOWN INDICATION
     Route: 065
  12. CARVEDILOL [Concomitant]
     Indication: DRUG USE FOR UNKNOWN INDICATION
     Route: 065
  13. LIPITOR [Concomitant]
     Indication: DRUG USE FOR UNKNOWN INDICATION
     Route: 065
  14. POTASSIUM CHLORIDE [Concomitant]
     Indication: DRUG USE FOR UNKNOWN INDICATION
     Route: 048
  15. PLAVIX [Concomitant]
     Indication: DRUG USE FOR UNKNOWN INDICATION
     Route: 048
  16. FUROSEMIDE [Concomitant]
     Indication: DRUG USE FOR UNKNOWN INDICATION
     Route: 048
  17. ZANTAC [Concomitant]
     Indication: DRUG USE FOR UNKNOWN INDICATION
     Route: 065
  18. WARFARIN SODIUM [Concomitant]
     Route: 065
  19. DARVOCET-N 100 [Concomitant]
     Indication: DRUG USE FOR UNKNOWN INDICATION
     Route: 048
  20. PERCOCET [Concomitant]
     Indication: DRUG USE FOR UNKNOWN INDICATION
     Route: 065

REACTIONS (4)
  - ACUTE CORONARY SYNDROME [None]
  - BUNDLE BRANCH BLOCK RIGHT [None]
  - ISCHAEMIC LIMB PAIN [None]
  - VASCULAR GRAFT OCCLUSION [None]
